FAERS Safety Report 8037163-5 (Version None)
Quarter: 2012Q1

REPORT INFORMATION
  Report Type: 
  Country: None (occurrence: None)
  Receive Date: 20120111
  Receipt Date: 20120102
  Transmission Date: 20120608
  Serious: Yes (Death)
  Sender: FDA-Public Use
  Company Number: US-BAYER-2012-001626

PATIENT
  Age: 56 Year
  Sex: Female

DRUGS (5)
  1. NAPROXEN SODIUM [Suspect]
  2. SALICYLATES [Suspect]
  3. ZOLPIDEM [Suspect]
  4. BUPRENORPHINE [Suspect]
  5. LAMOTRIGINE [Suspect]

REACTIONS (1)
  - TOXICITY TO VARIOUS AGENTS [None]
